FAERS Safety Report 21423741 (Version 1)
Quarter: 2022Q4

REPORT INFORMATION
  Report Type: Spontaneous
  Country: US (occurrence: None)
  Receive Date: 20221007
  Receipt Date: 20221007
  Transmission Date: 20230113
  Serious: No
  Sender: FDA-Public Use
  Company Number: 2022A311515

PATIENT
  Sex: Male
  Weight: 122.5 kg

DRUGS (1)
  1. SYMBICORT [Suspect]
     Active Substance: BUDESONIDE\FORMOTEROL FUMARATE DIHYDRATE
     Indication: Asthma
     Dosage: 160MCG/4.5MCG VIA INHALATION, AS NEEDED 2 PUFFS TWICE A DAY160.0UG AS REQUIRED
     Route: 055
     Dates: start: 202207

REACTIONS (3)
  - Bronchitis [Unknown]
  - Memory impairment [Unknown]
  - Device use issue [Unknown]
